FAERS Safety Report 5270056-5 (Version None)
Quarter: 2007Q1

REPORT INFORMATION
  Report Type: 
  Country: None (occurrence: None)
  Receive Date: 20070320
  Receipt Date: 20050603
  Transmission Date: 20070707
  Serious: Yes (Life-Threatening, Hospitalization, Disabling)
  Sender: FDA-Public Use
  Company Number: PL-BRISTOL-MYERS SQUIBB COMPANY-13718671

PATIENT
  Age: 55 Year
  Sex: Male

DRUGS (6)
  1. CISPLATIN [Suspect]
     Indication: NON-SMALL CELL LUNG CANCER
     Route: 042
     Dates: start: 20050525, end: 20050525
  2. VINORELBINE [Suspect]
     Indication: NON-SMALL CELL LUNG CANCER
     Route: 042
     Dates: start: 20050525, end: 20050525
  3. ONDANSETRON [Concomitant]
  4. BISOPROLOL [Concomitant]
  5. OMEPRAZOLE [Concomitant]
  6. MORPHINE [Concomitant]

REACTIONS (8)
  - CARDIAC FAILURE [None]
  - DEHYDRATION [None]
  - LUNG NEOPLASM MALIGNANT [None]
  - MALIGNANT NEOPLASM PROGRESSION [None]
  - NAUSEA [None]
  - ORAL INTAKE REDUCED [None]
  - RESPIRATORY FAILURE [None]
  - VOMITING [None]
